FAERS Safety Report 9955640 (Version 1)
Quarter: 2014Q1

REPORT INFORMATION
  Report Type: Report from Study
  Country: US (occurrence: US)
  Receive Date: 20140304
  Receipt Date: 20140304
  Transmission Date: 20141002
  Serious: No
  Sender: FDA-Public Use
  Company Number: US-ABBVIE-13P-163-1086344-00

PATIENT
  Age: 38 Year
  Sex: Female

DRUGS (8)
  1. HUMIRA [Suspect]
     Indication: PSORIASIS
     Dates: start: 201207
  2. RISPERIDONE [Concomitant]
     Indication: INSOMNIA
     Dosage: AT BEDTIME
  3. METHOTREXATE [Concomitant]
     Indication: PSORIASIS
     Dosage: WEEKLY
  4. CITALOPRAM [Concomitant]
     Indication: DEPRESSION
     Dosage: AT BEDTIME
  5. FOLIC ACID [Concomitant]
     Indication: VITAMIN SUPPLEMENTATION
  6. FISH OIL [Concomitant]
     Indication: NUTRITIONAL SUPPLEMENTATION
  7. MULTIVITAMIN [Concomitant]
     Indication: NUTRITIONAL SUPPLEMENTATION
     Dosage: DAILY
  8. EQUATE SINUS ALLERGY [Concomitant]
     Indication: SEASONAL ALLERGY

REACTIONS (1)
  - Blood pressure fluctuation [Not Recovered/Not Resolved]
